FAERS Safety Report 21997206 (Version 1)
Quarter: 2023Q1

REPORT INFORMATION
  Report Type: Report from Study
  Country: US (occurrence: US)
  Receive Date: 20230216
  Receipt Date: 20230216
  Transmission Date: 20230417
  Serious: No
  Sender: FDA-Public Use
  Company Number: US-002147023-NVSC2023US028520

PATIENT
  Sex: Female

DRUGS (1)
  1. KESIMPTA [Suspect]
     Active Substance: OFATUMUMAB
     Indication: Product used for unknown indication
     Dosage: UNK
     Route: 065
     Dates: start: 20221129

REACTIONS (7)
  - Peripheral swelling [Unknown]
  - Gait disturbance [Unknown]
  - Pain [Unknown]
  - Feeling hot [Unknown]
  - Arthritis [Unknown]
  - Arthralgia [Unknown]
  - Muscle tightness [Unknown]
